FAERS Safety Report 5317913-9 (Version None)
Quarter: 2007Q2

REPORT INFORMATION
  Report Type: 
  Country: None (occurrence: None)
  Receive Date: 20070507
  Receipt Date: 20070425
  Transmission Date: 20071010
  Serious: Yes (Hospitalization)
  Sender: FDA-Public Use
  Company Number: B0468805A

PATIENT
  Age: 55 Year
  Sex: Male

DRUGS (2)
  1. ZOFRAN [Suspect]
     Route: 042
     Dates: start: 20070413, end: 20070413
  2. CARBOPLATIN [Suspect]
     Dosage: 590MG PER DAY
     Route: 042
     Dates: start: 20070413, end: 20070413

REACTIONS (8)
  - ABDOMINAL PAIN [None]
  - ANAPHYLACTIC SHOCK [None]
  - ERYTHEMA [None]
  - EYELID OEDEMA [None]
  - FACE OEDEMA [None]
  - FLUSHING [None]
  - VASODILATATION [None]
  - VOMITING [None]
